FAERS Safety Report 20730966 (Version 9)
Quarter: 2022Q3

REPORT INFORMATION
  Report Type: Report from Study
  Country: TH (occurrence: None)
  Receive Date: 20220420
  Receipt Date: 20220808
  Transmission Date: 20221027
  Serious: Yes (Hospitalization)
  Sender: FDA-Public Use
  Company Number: TH-ROCHE-3078276

PATIENT
  Age: 61 Year
  Sex: Male
  Weight: 63 kg

DRUGS (41)
  1. TIRAGOLUMAB [Suspect]
     Active Substance: TIRAGOLUMAB
     Indication: Oesophageal squamous cell carcinoma metastatic
     Dosage: MOST RECENT DOSE OF STUDY DRUG PRIOR TO AE WAS 07/MAR/2022 AND SAE WAS 04/APR/2022
     Route: 042
     Dates: start: 20210518
  2. ATEZOLIZUMAB [Suspect]
     Active Substance: ATEZOLIZUMAB
     Indication: Oesophageal squamous cell carcinoma metastatic
     Dosage: MOST RECENT DOSE OF STUDY DRUG PRIOR TO AE WAS 07/MAR/2022 AND SAE WAS 04/APR/2022
     Route: 041
     Dates: start: 20210518
  3. PACLITAXEL [Suspect]
     Active Substance: PACLITAXEL
     Indication: Oesophageal squamous cell carcinoma metastatic
     Dosage: DOSE LAST STUDY DRUG ADMIN PRIOR AE AND SAE 297 MG. ON 31/AUG/2021, MOST RECENT DOSE OF PACLITAXEL P
     Route: 042
     Dates: start: 20210518
  4. CISPLATIN [Suspect]
     Active Substance: CISPLATIN
     Indication: Oesophageal squamous cell carcinoma metastatic
     Dosage: DOSE LAST CISPLATIN ADMIN PRIOR AE 125 MG. ON 31/AUG/2021, MOST RECENT DOSE OF CISPLATIN PRIOR TO AE
     Route: 042
     Dates: start: 20210518
  5. SODIUM CHLORIDE [Concomitant]
     Active Substance: SODIUM CHLORIDE
     Indication: Hyponatraemia
     Route: 048
     Dates: start: 20210607
  6. SODIUM CHLORIDE [Concomitant]
     Active Substance: SODIUM CHLORIDE
     Route: 048
     Dates: start: 20220307, end: 20220413
  7. SODIUM CHLORIDE [Concomitant]
     Active Substance: SODIUM CHLORIDE
     Route: 042
     Dates: start: 20220317, end: 20220318
  8. SODIUM CHLORIDE [Concomitant]
     Active Substance: SODIUM CHLORIDE
     Route: 042
     Dates: start: 20220316, end: 20220316
  9. SODIUM CHLORIDE [Concomitant]
     Active Substance: SODIUM CHLORIDE
     Route: 048
     Dates: start: 20220415
  10. SODIUM CHLORIDE [Concomitant]
     Active Substance: SODIUM CHLORIDE
     Route: 048
     Dates: start: 20220414, end: 20220415
  11. SENOKOT [Concomitant]
     Active Substance: SENNOSIDES
     Indication: Constipation
     Dates: start: 20210621
  12. TRIAMCINOLONE [Concomitant]
     Active Substance: TRIAMCINOLONE
     Indication: Dermatitis
     Route: 061
     Dates: start: 20220221
  13. NORGESIC (THAILAND) [Concomitant]
     Indication: Myalgia
     Dates: start: 20220201
  14. NORGESIC (THAILAND) [Concomitant]
     Dates: start: 20220214
  15. OMEPRAZOE [Concomitant]
     Indication: Flatulence
     Route: 048
     Dates: start: 20220413, end: 20220416
  16. OMEPRAZOE [Concomitant]
     Dates: start: 20220606
  17. METHYL SALICYLATE [Concomitant]
     Active Substance: METHYL SALICYLATE
     Indication: Myalgia
     Dates: start: 20220214
  18. BENADRYL (THAILAND) [Concomitant]
     Dates: start: 20210920
  19. FAMOTIDINE [Concomitant]
     Active Substance: FAMOTIDINE
     Dates: start: 20210920
  20. ZINC SULFATE [Concomitant]
     Active Substance: ZINC SULFATE
     Route: 048
     Dates: start: 20220413, end: 20220426
  21. SODIUM CHLORIDE [Concomitant]
     Active Substance: SODIUM CHLORIDE
     Route: 042
     Dates: start: 20220414, end: 20220416
  22. THIAMINE [Concomitant]
     Active Substance: THIAMINE
     Route: 042
     Dates: start: 20220413, end: 20220414
  23. VITAMIN B COMPLEX [Concomitant]
     Active Substance: CYANOCOBALAMIN\DEXPANTHENOL\NIACINAMIDE\PYRIDOXINE HYDROCHLORIDE\RIBOFLAVIN 5^-PHOSPHATE SODIUM\THIA
     Route: 048
     Dates: start: 20220414, end: 20220426
  24. METOCLOPRAMIDE [Concomitant]
     Active Substance: METOCLOPRAMIDE
     Indication: Vomiting
     Route: 042
     Dates: start: 20220413, end: 20220414
  25. AMOXICILLIN AND CLAVULANATE POTASSIUM [Concomitant]
     Active Substance: AMOXICILLIN\CLAVULANATE POTASSIUM
     Route: 048
     Dates: start: 20220318, end: 20220326
  26. OFLOXACIN [Concomitant]
     Active Substance: OFLOXACIN
     Route: 048
     Dates: start: 20220316, end: 20220319
  27. DEXTROMETHORPHAN [Concomitant]
     Active Substance: DEXTROMETHORPHAN
     Indication: Throat irritation
     Route: 048
     Dates: start: 20220318, end: 20220319
  28. INHALEX FORTE [Concomitant]
     Indication: Dyspnoea
     Route: 055
     Dates: start: 20220718, end: 20220718
  29. LACTATED RINGERS SOLUTION [Concomitant]
     Active Substance: CALCIUM CHLORIDE\POTASSIUM CHLORIDE\SODIUM CHLORIDE\SODIUM LACTATE
     Indication: Cardiac arrest
     Route: 042
     Dates: start: 20220718, end: 20220718
  30. DEXAMETHASONE [Concomitant]
     Active Substance: DEXAMETHASONE
     Indication: Cardiac arrest
     Route: 042
     Dates: start: 20220718, end: 20220718
  31. PIPERACILLIN SODIUM\TAZOBACTAM SODIUM [Concomitant]
     Active Substance: PIPERACILLIN SODIUM\TAZOBACTAM SODIUM
     Indication: Sepsis
     Route: 042
     Dates: start: 20220718, end: 20220718
  32. ADENOSINE [Concomitant]
     Active Substance: ADENOSINE
     Route: 042
     Dates: start: 20220718, end: 20220718
  33. ENOXAPARIN [Concomitant]
     Active Substance: ENOXAPARIN
     Route: 058
     Dates: start: 20220718, end: 20220718
  34. NOREPINEPHRINE [Concomitant]
     Active Substance: NOREPINEPHRINE
     Indication: Hypotension
     Route: 042
     Dates: start: 20220718, end: 20220718
  35. ETOMIDATE [Concomitant]
     Active Substance: ETOMIDATE
     Route: 042
     Dates: start: 20220718, end: 20220718
  36. SUCCINYLCHOLINE [Concomitant]
     Active Substance: SUCCINYLCHOLINE
     Route: 042
     Dates: start: 20220718, end: 20220718
  37. AMIODARONE [Concomitant]
     Active Substance: AMIODARONE
     Indication: Cardiac arrest
     Route: 042
     Dates: start: 20220718, end: 20220718
  38. AMIODARONE [Concomitant]
     Active Substance: AMIODARONE
     Route: 042
     Dates: start: 20220718, end: 20220718
  39. EPINEPHRINE [Concomitant]
     Active Substance: EPINEPHRINE
     Indication: Cardiac arrest
     Route: 042
     Dates: start: 20220718, end: 20220718
  40. BETAHISTINE [Concomitant]
     Active Substance: BETAHISTINE
     Indication: Vertigo
     Route: 048
     Dates: start: 20220315, end: 20220316
  41. ACETAMINOPHEN [Concomitant]
     Active Substance: ACETAMINOPHEN
     Indication: Headache
     Dates: start: 20220623

REACTIONS (2)
  - Nausea [Recovered/Resolved]
  - Adrenal insufficiency [Not Recovered/Not Resolved]

NARRATIVE: CASE EVENT DATE: 20220313
